FAERS Safety Report 25344824 (Version 1)
Quarter: 2025Q2

REPORT INFORMATION
  Report Type: Report from Study
  Country: CN (occurrence: CN)
  Receive Date: 20250522
  Receipt Date: 20250522
  Transmission Date: 20250717
  Serious: Yes (Hospitalization)
  Sender: ROCHE
  Company Number: CN-ROCHE-10000290464

PATIENT
  Age: 35 Year
  Sex: Female
  Weight: 64 kg

DRUGS (1)
  1. ACTEMRA [Suspect]
     Active Substance: TOCILIZUMAB
     Indication: Rheumatoid arthritis
     Dosage: STRENGTH: INJECTION/80MG/4ML/VIAL?480MG/TIME, 30 DAYS PER TIME
     Route: 042
     Dates: start: 20231207

REACTIONS (1)
  - Carotid arteriosclerosis [Unknown]

NARRATIVE: CASE EVENT DATE: 20250514
